FAERS Safety Report 7460415-4 (Version None)
Quarter: 2011Q2

REPORT INFORMATION
  Report Type: 
  Country: None (occurrence: None)
  Receive Date: 20110505
  Receipt Date: 20110427
  Transmission Date: 20111010
  Serious: Yes (Disabling, Other)
  Sender: FDA-Public Use
  Company Number: B0710469A

PATIENT
  Age: 59 Year
  Sex: Male

DRUGS (5)
  1. SALMETEROL/FLUTICASONE PROPIONATE 25/250UG [Concomitant]
  2. ALBUTEROL SULFATE AUTOHALER [Concomitant]
  3. SPIRIVA [Concomitant]
  4. FLIXONASE [Suspect]
     Dosage: 4SPR TWICE PER DAY
     Route: 045
     Dates: start: 20080101, end: 20090101
  5. ESCITALOPRAM [Concomitant]
     Indication: DEPRESSION

REACTIONS (1)
  - GLAUCOMA [None]
